FAERS Safety Report 10581478 (Version 1)
Quarter: 2014Q4

REPORT INFORMATION
  Report Type: Spontaneous
  Country: US (occurrence: None)
  Receive Date: 20141112
  Receipt Date: 20141112
  Transmission Date: 20150529
  Serious: Yes (Life-Threatening)
  Sender: FDA-Public Use
  Company Number: None

PATIENT
  Age: 18 Year
  Sex: Male
  Weight: 68.04 kg

DRUGS (2)
  1. HALDOL [Suspect]
     Active Substance: HALOPERIDOL
     Indication: BIPOLAR I DISORDER
     Route: 048
     Dates: start: 20141020, end: 20141109
  2. HALDOL [Suspect]
     Active Substance: HALOPERIDOL
     Indication: MANIA
     Route: 048
     Dates: start: 20141020, end: 20141109

REACTIONS (4)
  - Tremor [None]
  - Fear of death [None]
  - Agitation [None]
  - Neuroleptic malignant syndrome [None]

NARRATIVE: CASE EVENT DATE: 20141109
